FAERS Safety Report 8153315-8 (Version None)
Quarter: 2012Q1

REPORT INFORMATION
  Report Type: 
  Country: None (occurrence: None)
  Receive Date: 20120103
  Receipt Date: 20111030
  Transmission Date: 20120608
  Serious: No
  Sender: FDA-Public Use
  Company Number: AE-2011-002893

PATIENT
  Age: 52 Year
  Sex: Female
  Weight: 122.4712 kg

DRUGS (8)
  1. HYDROCHLOROTHIAZIDE [Concomitant]
  2. INCIVEK [Suspect]
     Dosage: 6 DOSAGE FORMS(2 DOSAGE FORMS,3 IN 1 D),ORAL
     Route: 048
     Dates: start: 20111021
  3. SINGULAIR [Concomitant]
  4. PEGINTERFERON (PEGINTERFERON ALFA-2A) [Concomitant]
  5. LANTUS [Concomitant]
  6. RIBAPAK (RIBAVIRIN) [Concomitant]
  7. RANITIDINE HYDROCHLORIDE [Concomitant]
  8. POTASSIUM CHLORIDE [Concomitant]

REACTIONS (3)
  - DIARRHOEA [None]
  - ABDOMINAL PAIN UPPER [None]
  - ANORECTAL DISCOMFORT [None]
